FAERS Safety Report 12767727 (Version 2)
Quarter: 2016Q3

REPORT INFORMATION
  Report Type: Spontaneous
  Country: JP (occurrence: JP)
  Receive Date: 20160921
  Receipt Date: 20160930
  Transmission Date: 20161109
  Serious: Yes (Death, Other)
  Sender: FDA-Public Use
  Company Number: JP-ALLERGAN-1669385US

PATIENT
  Age: 74 Year
  Sex: Male

DRUGS (2)
  1. BOTOX [Suspect]
     Active Substance: ONABOTULINUMTOXINA
     Dosage: UNK, SINGLE
     Route: 030
     Dates: start: 20110210, end: 20110210
  2. BOTOX [Suspect]
     Active Substance: ONABOTULINUMTOXINA
     Indication: SPONDYLITIS
     Dosage: UNK, SINGLE
     Route: 030
     Dates: start: 20141211, end: 20141211

REACTIONS (2)
  - Off label use [Unknown]
  - Brain neoplasm [Fatal]
